FAERS Safety Report 15785651 (Version 1)
Quarter: 2018Q4

REPORT INFORMATION
  Report Type: Spontaneous
  Country: US (occurrence: US)
  Receive Date: 20181228
  Receipt Date: 20181228
  Transmission Date: 20190205
  Serious: No
  Sender: FDA-Public Use
  Company Number: None

PATIENT

DRUGS (2)
  1. GENTAMICIN SULFATE GENTAMICIN 800MG/20ML [Suspect]
     Active Substance: GENTAMICIN SULFATE
     Dosage: IV GAB  100ML
     Route: 042
  2. BUPIVACAINE HCL BUPIVACAINE HCL [Suspect]
     Active Substance: BUPIVACAINE

REACTIONS (8)
  - Exposure during pregnancy [None]
  - Afterbirth pain [None]
  - Product dispensing error [None]
  - Wrong product administered [None]
  - Product label confusion [None]
  - Wrong product stored [None]
  - Product administration error [None]
  - Drug monitoring procedure not performed [None]
